FAERS Safety Report 19382027 (Version 1)
Quarter: 2021Q2

REPORT INFORMATION
  Report Type: Spontaneous
  Country: ES (occurrence: ES)
  Receive Date: 20210607
  Receipt Date: 20210607
  Transmission Date: 20210717
  Serious: Yes (Hospitalization)
  Sender: FDA-Public Use
  Company Number: ES-009507513-2106ESP000619

PATIENT
  Age: 74 Year
  Sex: Male

DRUGS (1)
  1. KEYTRUDA [Suspect]
     Active Substance: PEMBROLIZUMAB
     Indication: NON-SMALL CELL LUNG CANCER
     Dosage: STRENGTH: 25 MG/ML, DOSE/FREQUENCY: 200 MILLIGRAM, Q3W
     Route: 042
     Dates: start: 20200324, end: 20210205

REACTIONS (2)
  - Immune-mediated enterocolitis [Recovered/Resolved]
  - Immune-mediated arthritis [Recovered/Resolved]

NARRATIVE: CASE EVENT DATE: 20200914
